FAERS Safety Report 6618338-6 (Version None)
Quarter: 2010Q1

REPORT INFORMATION
  Report Type: 
  Country: None (occurrence: None)
  Receive Date: 20100308
  Receipt Date: 20100302
  Transmission Date: 20100710
  Serious: Yes (Hospitalization)
  Sender: FDA-Public Use
  Company Number: A0808166A

PATIENT
  Sex: Female

DRUGS (2)
  1. TYKERB [Suspect]
     Dosage: 1250MG PER DAY
     Route: 048
     Dates: start: 20090918, end: 20100226
  2. XELODA [Concomitant]
     Dates: end: 20100226

REACTIONS (8)
  - DECREASED APPETITE [None]
  - DEVICE RELATED INFECTION [None]
  - DIARRHOEA [None]
  - MALAISE [None]
  - NAUSEA [None]
  - SEPSIS [None]
  - VIRAL INFECTION [None]
  - VOMITING [None]
